FAERS Safety Report 12185907 (Version 1)
Quarter: 2016Q1

REPORT INFORMATION
  Report Type: Spontaneous
  Country: DE (occurrence: DE)
  Receive Date: 20160317
  Receipt Date: 20160317
  Transmission Date: 20160526
  Serious: Yes (Congenital Anomaly, Other)
  Sender: FDA-Public Use
  Company Number: DE-HETERO LABS LTD-1049230

PATIENT
  Sex: Female
  Weight: 3.43 kg

DRUGS (5)
  1. VENLAFAXINE HYDROCHLORIDE. [Concomitant]
     Active Substance: VENLAFAXINE HYDROCHLORIDE
     Route: 064
  2. CYANOCOBALAMIN. [Concomitant]
     Active Substance: CYANOCOBALAMIN
     Route: 064
     Dates: start: 20140921, end: 20150619
  3. FOLIC ACID. [Concomitant]
     Active Substance: FOLIC ACID
     Route: 064
  4. LEVOTHYROXINE SODIUM. [Concomitant]
     Active Substance: LEVOTHYROXINE SODIUM
     Route: 064
     Dates: start: 20140921, end: 20150619
  5. ESCITALOPRAM [Suspect]
     Active Substance: ESCITALOPRAM OXALATE
     Route: 064

REACTIONS (4)
  - Seizure [Unknown]
  - Coordination abnormal [Not Recovered/Not Resolved]
  - Hypotonia [Not Recovered/Not Resolved]
  - Developmental hip dysplasia [Recovering/Resolving]
